FAERS Safety Report 7920147-2 (Version None)
Quarter: 2011Q4

REPORT INFORMATION
  Report Type: 
  Country: None (occurrence: None)
  Receive Date: 20111117
  Receipt Date: 20111108
  Transmission Date: 20120403
  Serious: Yes (Other)
  Sender: FDA-Public Use
  Company Number: CA-JNJFOC-20111104370

PATIENT
  Sex: Male
  Weight: 76.2 kg

DRUGS (13)
  1. VITAMIN B-12 [Concomitant]
  2. AZATHIOPRINE [Concomitant]
  3. INVEGA [Concomitant]
  4. VITAMIN D [Concomitant]
  5. LAMOTRIGINE [Concomitant]
  6. CITALOPRAM HYDROBROMIDE [Concomitant]
  7. METFORMIN HCL [Concomitant]
  8. MULTI-VITAMINS [Concomitant]
  9. CO-ETIDROCAL [Concomitant]
  10. RESPIROMA [Concomitant]
  11. REMICADE [Suspect]
     Indication: CROHN'S DISEASE
     Route: 042
     Dates: start: 20090101
  12. FOLIC ACID [Concomitant]
  13. QUETIAPINE [Concomitant]

REACTIONS (1)
  - HAEMOCHROMATOSIS [None]
